FAERS Safety Report 24574430 (Version 1)
Quarter: 2024Q4

REPORT INFORMATION
  Report Type: Spontaneous
  Country: IE (occurrence: IE)
  Receive Date: 20241104
  Receipt Date: 20241104
  Transmission Date: 20250115
  Serious: Yes (Other)
  Sender: AUROBINDO
  Company Number: IE-HPRA-2024-116160

PATIENT
  Age: 5 Year
  Sex: Male
  Weight: 20 kg

DRUGS (1)
  1. MONTELUKAST [Suspect]
     Active Substance: MONTELUKAST
     Indication: Asthma
     Dosage: 5 MILLIGRAM
     Route: 048
     Dates: start: 20200401, end: 20240101

REACTIONS (9)
  - Abnormal behaviour [Not Recovered/Not Resolved]
  - Aggression [Not Recovered/Not Resolved]
  - Defiant behaviour [Not Recovered/Not Resolved]
  - Illogical thinking [Not Recovered/Not Resolved]
  - Separation anxiety disorder [Not Recovered/Not Resolved]
  - Epistaxis [Not Recovered/Not Resolved]
  - Nodule [Not Recovered/Not Resolved]
  - Rash [Not Recovered/Not Resolved]
  - Loss of personal independence in daily activities [Unknown]
